FAERS Safety Report 18665061 (Version 2)
Quarter: 2021Q1

REPORT INFORMATION
  Report Type: Report from Study
  Country: BR (occurrence: BR)
  Receive Date: 20201225
  Receipt Date: 20210225
  Transmission Date: 20210419
  Serious: Yes (Hospitalization, Other)
  Sender: FDA-Public Use
  Company Number: BR-TAKEDA-2020TUS059956

PATIENT
  Sex: Male

DRUGS (5)
  1. OSTEOBAN [Concomitant]
     Dosage: UNK UNK, MONTHLY
  2. OSCAL [CALCIUM CARBONATE] [Concomitant]
     Dosage: 400 MILLIGRAM
  3. MESACOL [MESALAZINE] [Suspect]
     Active Substance: MESALAMINE
     Indication: COLITIS
     Dosage: 800 UNK
     Route: 065
  4. VEDOLIZUMAB [Suspect]
     Active Substance: VEDOLIZUMAB
     Indication: COLITIS ULCERATIVE
     Dosage: 300 MILLIGRAM
     Route: 042
     Dates: start: 20190618
  5. MESALAZINE [Suspect]
     Active Substance: MESALAMINE
     Indication: PRODUCT USED FOR UNKNOWN INDICATION
     Dosage: 800 MILLIGRAM
     Route: 065

REACTIONS (4)
  - Bone tuberculosis [Recovering/Resolving]
  - Osteoporosis [Unknown]
  - Colitis [Recovering/Resolving]
  - Haemorrhage [Unknown]
